FAERS Safety Report 8017444-1 (Version None)
Quarter: 2012Q1

REPORT INFORMATION
  Report Type: 
  Country: None (occurrence: None)
  Receive Date: 20120103
  Receipt Date: 20111227
  Transmission Date: 20120608
  Serious: Yes (Hospitalization)
  Sender: FDA-Public Use
  Company Number: DE-BRISTOL-MYERS SQUIBB COMPANY-16167645

PATIENT
  Age: 58 Year
  Sex: Female
  Weight: 48 kg

DRUGS (4)
  1. CISPLATIN [Suspect]
     Indication: HEAD AND NECK CANCER
     Dosage: RECENT DOSE:18JUL11
     Route: 042
     Dates: start: 20110606
  2. FLUOROURACIL [Suspect]
     Indication: HEAD AND NECK CANCER
     Dosage: RECENT DOSE:18JUL11
     Route: 042
     Dates: start: 20110606
  3. ERBITUX [Suspect]
     Indication: HEAD AND NECK CANCER
     Dosage: RECENT DOSE:27SEP11
     Route: 042
     Dates: start: 20110809
  4. DOCETAXEL [Suspect]
     Indication: HEAD AND NECK CANCER
     Dosage: RECENT DOSE:18JUL11
     Route: 042
     Dates: start: 20110606

REACTIONS (1)
  - MUCOSAL INFLAMMATION [None]
